FAERS Safety Report 4619529-6 (Version None)
Quarter: 2005Q2

REPORT INFORMATION
  Report Type: 
  Country: None (occurrence: None)
  Receive Date: 20050321
  Receipt Date: 20040716
  Transmission Date: 20051028
  Serious: Yes (Other)
  Sender: FDA-Public Use
  Company Number: 2004-07-1132

PATIENT
  Age: 45 Year
  Sex: Male
  Weight: 67.1324 kg

DRUGS (5)
  1. PEG-INTRON [Suspect]
     Indication: HEPATITIS C
     Dosage: 96 MCG QW SUBCUTANEOUS
     Route: 058
     Dates: start: 20030924, end: 20040716
  2. REBETOL [Suspect]
     Indication: HEPATITIS C
     Dosage: 1000 MG QD ORAL
     Route: 048
     Dates: start: 20030924, end: 20040716
  3. QUETIAPINE FUMURATE [Concomitant]
  4. DIVALPROEX SODIUM [Concomitant]
  5. BUPROPION HYDROCHLORIDE [Concomitant]

REACTIONS (1)
  - FACIAL PALSY [None]
